FAERS Safety Report 20890531 (Version 1)
Quarter: 2022Q2

REPORT INFORMATION
  Report Type: Spontaneous
  Country: CA (occurrence: CA)
  Receive Date: 20220530
  Receipt Date: 20220530
  Transmission Date: 20220721
  Serious: Yes (Life-Threatening, Hospitalization)
  Sender: FDA-Public Use
  Company Number: None

PATIENT
  Age: 3 Year
  Sex: Male
  Weight: 17 kg

DRUGS (36)
  1. CARBOPLATIN [Suspect]
     Active Substance: CARBOPLATIN
     Indication: Transplant
     Route: 042
  2. THIOTEPA [Suspect]
     Active Substance: THIOTEPA
     Indication: Transplant
     Route: 042
  3. ACYCLOVIR [Concomitant]
     Active Substance: ACYCLOVIR
  4. VANCOMYCIN [Concomitant]
     Active Substance: VANCOMYCIN
  5. ALTEPLASE [Concomitant]
     Active Substance: ALTEPLASE
     Route: 042
  6. AMITRIPTYLINE [Concomitant]
     Active Substance: AMITRIPTYLINE
  7. ATROPINE [Concomitant]
     Active Substance: ATROPINE
  8. CALCIUM+VIT D [Concomitant]
  9. CETIRIZINE [Concomitant]
     Active Substance: CETIRIZINE HYDROCHLORIDE
  10. CICLESONIDE [Concomitant]
     Active Substance: CICLESONIDE
  11. DIFICID [Concomitant]
     Active Substance: FIDAXOMICIN
  12. DIMENHYDRINATE [Concomitant]
     Active Substance: DIMENHYDRINATE
     Route: 042
  13. DIPHENHYDRAMINE [Concomitant]
     Active Substance: DIPHENHYDRAMINE
  14. DOCUSATE SODIUM [Concomitant]
     Active Substance: DOCUSATE SODIUM
  15. FILGRASTIM [Concomitant]
     Active Substance: FILGRASTIM
  16. FLUCONAZOLE [Concomitant]
     Active Substance: FLUCONAZOLE
  17. FUROSEMIDE [Concomitant]
     Active Substance: FUROSEMIDE
  18. GRANISETRON [Concomitant]
     Active Substance: GRANISETRON
  19. LANSOPRAZOLE [Concomitant]
     Active Substance: LANSOPRAZOLE
  20. LORAZEPAM [Concomitant]
     Active Substance: LORAZEPAM
  21. MAGNESIUM [Concomitant]
     Active Substance: MAGNESIUM
  22. METHYLPREDNISOLONE [Concomitant]
     Active Substance: METHYLPREDNISOLONE
  23. METRONIDAZOLE [Concomitant]
     Active Substance: METRONIDAZOLE
  24. MOMETASONE FUROATE [Concomitant]
     Active Substance: MOMETASONE FUROATE
  25. NALOXONE [Concomitant]
     Active Substance: NALOXONE
     Route: 030
  26. OLANZAPINE [Concomitant]
     Active Substance: OLANZAPINE
  27. ONDANSETRON [Concomitant]
     Active Substance: ONDANSETRON
  28. OXYBUTYNIN [Concomitant]
     Active Substance: OXYBUTYNIN
     Route: 065
  29. PANTOPRAZOLE [Concomitant]
     Active Substance: PANTOPRAZOLE
  30. PENTAMIDINE ISETHIONATE [Concomitant]
     Active Substance: PENTAMIDINE ISETHIONATE
     Dosage: STRENGTH: 300MG/VIAL BP
  31. PIPERACILLIN AND TAZOBACTAM [Concomitant]
     Active Substance: PIPERACILLIN SODIUM\TAZOBACTAM SODIUM
  32. POLYETHYLENE GLYCOL [Concomitant]
     Active Substance: POLYETHYLENE GLYCOL
  33. ALBUTEROL [Concomitant]
     Active Substance: ALBUTEROL
  34. SULFAMETHOXAZOLE\TRIMETHOPRIM [Concomitant]
     Active Substance: SULFAMETHOXAZOLE\TRIMETHOPRIM
  35. URSODIOL [Concomitant]
     Active Substance: URSODIOL
  36. VALGANCICLOVIR [Concomitant]
     Active Substance: VALGANCICLOVIR

REACTIONS (7)
  - Abdominal pain [Recovered/Resolved]
  - Clostridium difficile colitis [Recovered/Resolved]
  - Clostridium difficile infection [Recovered/Resolved]
  - Diarrhoea [Recovered/Resolved]
  - Mucosal inflammation [Recovered/Resolved]
  - Oral pain [Recovered/Resolved]
  - Vomiting [Recovered/Resolved]
